FAERS Safety Report 11897301 (Version 2)
Quarter: 2016Q4

REPORT INFORMATION
  Report Type: Spontaneous
  Country: PL (occurrence: PL)
  Receive Date: 20160108
  Receipt Date: 20161003
  Transmission Date: 20170206
  Serious: Yes (Hospitalization, Other)
  Sender: FDA-Public Use
  Company Number: PL-STRIDES ARCOLAB LIMITED-2016SP000031

PATIENT

DRUGS (8)
  1. CYCLOSPORINE. [Suspect]
     Active Substance: CYCLOSPORINE
     Dosage: TAPERED TO A MAINTENANCE LEVEL OF 100?125?G/L
  2. MYCOPHENOLATE MOFETIL. [Suspect]
     Active Substance: MYCOPHENOLATE MOFETIL
     Indication: IMMUNOSUPPRESSION
     Dosage: 2000 MG, PER DAY
     Route: 065
  3. CORTICOSTEROIDS [Suspect]
     Active Substance: CORTICOSTEROID NOS
     Dosage: 10 MG, PER DAY
     Route: 065
  4. MYCOPHENOLATE MOFETIL. [Suspect]
     Active Substance: MYCOPHENOLATE MOFETIL
     Dosage: 1250 MG, PER DAY
  5. CORTICOSTEROIDS [Suspect]
     Active Substance: CORTICOSTEROID NOS
     Indication: IMMUNOSUPPRESSION
     Dosage: 0.5 MG/KG, PER DAY
     Route: 065
  6. CYCLOSPORINE. [Suspect]
     Active Substance: CYCLOSPORINE
     Indication: IMMUNOSUPPRESSION
     Dosage: UNK
     Route: 065
  7. METHYLPREDNISOLONE. [Suspect]
     Active Substance: METHYLPREDNISOLONE
     Indication: TRANSPLANT REJECTION
     Dosage: 3.0 G, UNK
     Route: 040
  8. FLUCONAZOLE. [Concomitant]
     Active Substance: FLUCONAZOLE
     Indication: EVIDENCE BASED TREATMENT
     Dosage: UNK

REACTIONS (22)
  - Urinary tract infection [Unknown]
  - Hepatitis [Recovered/Resolved]
  - BK virus infection [Unknown]
  - Retinal detachment [Unknown]
  - Retinal infiltrates [Unknown]
  - Renal impairment [Unknown]
  - Varicella zoster virus infection [Unknown]
  - Polyomavirus-associated nephropathy [Unknown]
  - Cytomegalovirus infection [Unknown]
  - Vitritis [Unknown]
  - Renal tubular necrosis [Unknown]
  - Pneumonia [Unknown]
  - Type 2 diabetes mellitus [Unknown]
  - Necrotising herpetic retinopathy [Unknown]
  - Kidney fibrosis [Unknown]
  - Anaemia [Unknown]
  - Hepatic function abnormal [Unknown]
  - Retinal degeneration [Unknown]
  - Visual acuity reduced [Unknown]
  - Retinitis [Unknown]
  - Herpes simplex [Unknown]
  - Pyrexia [Recovered/Resolved]

NARRATIVE: CASE EVENT DATE: 201212
